FAERS Safety Report 22324818 (Version 1)
Quarter: 2023Q2

REPORT INFORMATION
  Report Type: Spontaneous
  Country: US (occurrence: None)
  Receive Date: 20230514
  Receipt Date: 20230514
  Transmission Date: 20230721
  Serious: Yes (Other)
  Sender: FDA-Public Use
  Company Number: None

PATIENT
  Age: 61 Year
  Sex: Female
  Weight: 56.25 kg

DRUGS (1)
  1. FENTANYL [Suspect]
     Active Substance: FENTANYL
     Indication: Back pain
     Dosage: OTHER QUANTITY : 15 PATCH(ES);?OTHER FREQUENCY : CHANGE Q 48HRS;?
     Route: 061
     Dates: start: 20230317, end: 20230416

REACTIONS (5)
  - Withdrawal syndrome [None]
  - Rhinorrhoea [None]
  - Restless legs syndrome [None]
  - Insomnia [None]
  - Product substitution issue [None]

NARRATIVE: CASE EVENT DATE: 20230323
